FAERS Safety Report 9843715 (Version 2)
Quarter: 2014Q1

REPORT INFORMATION
  Report Type: Spontaneous
  Country: US (occurrence: US)
  Receive Date: 20140126
  Receipt Date: 20140129
  Transmission Date: 20141002
  Serious: No
  Sender: FDA-Public Use
  Company Number: US-009507513-1401USA010815

PATIENT
  Age: 52 Year
  Sex: Female
  Weight: 61.68 kg

DRUGS (1)
  1. IMPLANON [Suspect]
     Indication: MENSTRUAL CYCLE MANAGEMENT
     Dosage: 1 ROD, UNK
     Route: 059
     Dates: start: 20101223

REACTIONS (4)
  - Amenorrhoea [Unknown]
  - Medical device complication [Unknown]
  - Implant site scar [Unknown]
  - Incorrect drug administration duration [Unknown]
